FAERS Safety Report 17430145 (Version 2)
Quarter: 2020Q1

REPORT INFORMATION
  Report Type: Spontaneous
  Country: US (occurrence: US)
  Receive Date: 20200218
  Receipt Date: 20200330
  Transmission Date: 20200409
  Serious: No
  Sender: FDA-Public Use
  Company Number: US-PFIZER INC-2020071414

PATIENT
  Age: 29 Year
  Sex: Female
  Weight: 60 kg

DRUGS (1)
  1. METHOTREXATE SODIUM. [Suspect]
     Active Substance: METHOTREXATE SODIUM
     Dosage: 10 MG, WEEKLY (2.5 MG TABLET 4 TABLETS WEEKLY)
     Route: 048
     Dates: start: 2009, end: 20100108

REACTIONS (5)
  - Hepatic enzyme increased [Recovered/Resolved]
  - Off label use [Unknown]
  - Contraindicated product administered [Unknown]
  - Drug intolerance [Unknown]
  - Treatment failure [Unknown]

NARRATIVE: CASE EVENT DATE: 20090911
